FAERS Safety Report 13577380 (Version 1)
Quarter: 2017Q2

REPORT INFORMATION
  Report Type: Spontaneous
  Country: FR (occurrence: FR)
  Receive Date: 20170524
  Receipt Date: 20170524
  Transmission Date: 20170830
  Serious: Yes (Other)
  Sender: FDA-Public Use
  Company Number: FR-FRESENIUS KABI-FK201704354

PATIENT
  Age: 38 Year
  Sex: Female

DRUGS (1)
  1. CEFUROXIME (MANUFACTURER UNKNOWN) [Suspect]
     Active Substance: CEFUROXIME
     Indication: DRUG PROVOCATION TEST
     Route: 065

REACTIONS (3)
  - Abdominal pain [Recovered/Resolved]
  - Conjunctivitis [Recovered/Resolved]
  - Dyspnoea [Recovered/Resolved]
